FAERS Safety Report 24306350 (Version 1)
Quarter: 2024Q3

REPORT INFORMATION
  Report Type: Spontaneous
  Country: ZA (occurrence: ZA)
  Receive Date: 20240911
  Receipt Date: 20240911
  Transmission Date: 20241016
  Serious: Yes (Death, Other)
  Sender: MACLEODS
  Company Number: ZA-MACLEODS PHARMA-MAC2024049191

PATIENT

DRUGS (18)
  1. HYDROCHLOROTHIAZIDE\VALSARTAN [Suspect]
     Active Substance: HYDROCHLOROTHIAZIDE\VALSARTAN
     Indication: Hypertension
     Dosage: 160/12.5 MG TAKE ONE TABLET DAILY
     Route: 048
  2. MICONAZOLE [Suspect]
     Active Substance: MICONAZOLE\MICONAZOLE NITRATE
     Indication: Product used for unknown indication
     Dosage: 2 DIRECTIONS APPLY THREE TIMES A DAY
     Route: 061
  3. DULCOLAX (BISACODYL) [Suspect]
     Active Substance: BISACODYL
     Indication: Product used for unknown indication
     Dosage: 10 MG INSERT ONE PER RECTUM IF NECESSARY
     Route: 054
  4. OLANZAPINE [Suspect]
     Active Substance: OLANZAPINE
     Indication: Schizophrenia
     Dosage: TAKE ONE TABLET IF NECESSARY
     Route: 048
  5. OLANZAPINE [Suspect]
     Active Substance: OLANZAPINE
     Indication: Bipolar disorder
  6. FENTANYL [Suspect]
     Active Substance: FENTANYL\FENTANYL CITRATE
     Indication: Pain
     Dosage: 25 MCG
     Route: 061
  7. FENTANYL [Suspect]
     Active Substance: FENTANYL\FENTANYL CITRATE
     Dosage: 12 MCG
     Route: 061
  8. ESOMEPRAZOLE [Suspect]
     Active Substance: ESOMEPRAZOLE
     Indication: Dyspepsia
     Dosage: TAKE ONE TABLET IN THE MORNING AND AT NIGHT 20 MG
     Route: 048
  9. DUPHALAC [Suspect]
     Active Substance: LACTULOSE
     Indication: Product used for unknown indication
     Dosage: 3.3 G TAKE 15ML (3X5ML MEDICINE MEASUREAS AT NIGHT)
     Route: 048
  10. ONDANSETRON HYDROCHLORIDE [Suspect]
     Active Substance: ONDANSETRON HYDROCHLORIDE
     Indication: Product used for unknown indication
     Dosage: TAKE ONE TABLET UNDER THE TONGUE DAILY
     Route: 048
  11. OXYCODONE HYDROCHLORIDE [Suspect]
     Active Substance: OXYCODONE HYDROCHLORIDE
     Indication: Anaesthesia
     Dosage: 10 MG TAKE ONE CAPSULE THREE TIMES A DAY
     Route: 048
  12. UNSPECIFIED INGREDIENT [Suspect]
     Active Substance: UNSPECIFIED INGREDIENT
     Indication: Product used for unknown indication
     Dosage: 4 MG TAKE CONTENTS OF ONE AMPULE EIGHT HOURLY
     Route: 048
  13. HYDROCHLOROTHIAZIDE\VALSARTAN [Suspect]
     Active Substance: HYDROCHLOROTHIAZIDE\VALSARTAN
     Indication: Hypertension
     Dosage: 160/12.5 MG TAKE ONE TABLET DAILY
     Route: 048
  14. CARVEDILOL [Suspect]
     Active Substance: CARVEDILOL
     Indication: Hypertension
     Dosage: 25 MILLIGRAM
     Route: 048
  15. ACETAMINOPHEN\CAFFEINE\CODEINE PHOSPHATE\MEPROBAMATE [Suspect]
     Active Substance: ACETAMINOPHEN\CAFFEINE\CODEINE PHOSPHATE\MEPROBAMATE
     Indication: Pain
     Dosage: TAKE TWO TABLETS TWICE A DAY AFTER MEALSIF NECESSARY
     Route: 048
  16. ETORICOXIB [Suspect]
     Active Substance: ETORICOXIB
     Indication: Product used for unknown indication
     Dosage: 90 MG TAKE ONE TABLET DAILY AFTER MEALS AS DIRECTED
     Route: 048
  17. ETORICOXIB [Suspect]
     Active Substance: ETORICOXIB
     Indication: Pain
     Dosage: 90 MG TAKE ONE TABLET DAILY AFTER MEALS
     Route: 048
  18. FENTANYL [Suspect]
     Active Substance: FENTANYL\FENTANYL CITRATE
     Indication: Pain
     Dosage: 25 MCG APPLY ONE PATCH TO THE SKIN EVERY 72HOURS
     Route: 061

REACTIONS (2)
  - Death [Fatal]
  - Neoplasm malignant [Unknown]
